FAERS Safety Report 18334428 (Version 1)
Quarter: 2020Q3

REPORT INFORMATION
  Report Type: Spontaneous
  Country: US (occurrence: US)
  Receive Date: 20200930
  Receipt Date: 20200930
  Transmission Date: 20201103
  Serious: No
  Sender: FDA-Public Use
  Company Number: None

PATIENT
  Age: 61 Year
  Sex: Female
  Weight: 63.5 kg

DRUGS (1)
  1. METFORMIN (METFORMIN HCL 100MG TAB) [Suspect]
     Active Substance: METFORMIN HYDROCHLORIDE
     Indication: DIABETES MELLITUS
     Route: 048
     Dates: start: 20140326, end: 20200618

REACTIONS (4)
  - Dialysis [None]
  - Nephropathy [None]
  - Metabolic acidosis [None]
  - Lactic acidosis [None]

NARRATIVE: CASE EVENT DATE: 20200618
